FAERS Safety Report 8300137-0 (Version None)
Quarter: 2012Q2

REPORT INFORMATION
  Report Type: 
  Country: None (occurrence: None)
  Receive Date: 20120420
  Receipt Date: 20120417
  Transmission Date: 20120825
  Serious: No
  Sender: FDA-Public Use
  Company Number: US-PFIZER INC-2012067368

PATIENT
  Sex: Male
  Weight: 85 kg

DRUGS (2)
  1. SUTENT [Suspect]
     Indication: METASTATIC RENAL CELL CARCINOMA
     Dosage: 50 MG, CYCLIC
     Dates: start: 20120127, end: 20120101
  2. SUTENT [Suspect]
     Dosage: 50 MG, DAILY
     Route: 048
     Dates: start: 20120201

REACTIONS (6)
  - WEIGHT DECREASED [None]
  - BREAKTHROUGH PAIN [None]
  - PAIN [None]
  - RENAL PAIN [None]
  - CHILLS [None]
  - PAROTITIS [None]
